FAERS Safety Report 8608124-X (Version None)
Quarter: 2012Q3

REPORT INFORMATION
  Report Type: 
  Country: None (occurrence: None)
  Receive Date: 20120821
  Receipt Date: 20120817
  Transmission Date: 20120928
  Serious: Yes (Other)
  Sender: FDA-Public Use
  Company Number: PHHY2012AU071339

PATIENT
  Sex: Male

DRUGS (1)
  1. CLOZARIL [Suspect]
     Dosage: 12.5 MG, UNK
     Dates: start: 20120717

REACTIONS (2)
  - GASTROENTERITIS [None]
  - SEPTIC SHOCK [None]
